FAERS Safety Report 10244783 (Version 1)
Quarter: 2014Q2

REPORT INFORMATION
  Report Type: Report from Study
  Country: US (occurrence: US)
  Receive Date: 20140618
  Receipt Date: 20140618
  Transmission Date: 20141212
  Serious: Yes (Other)
  Sender: FDA-Public Use
  Company Number: US-BAYER-2014-088684

PATIENT
  Age: 79 Year
  Sex: Female
  Weight: 55.33 kg

DRUGS (2)
  1. NEXAVAR [Suspect]
     Indication: THYROID CANCER
     Dosage: 400 MG, BID
     Route: 048
     Dates: start: 20140523
  2. NEXAVAR [Suspect]
     Indication: THYROID CANCER
     Dosage: REDUCED (ABATED)
     Dates: start: 2014, end: 20140609

REACTIONS (8)
  - Aphagia [None]
  - Fatigue [None]
  - Asthenia [None]
  - Oropharyngeal pain [None]
  - Oral pain [None]
  - Glossodynia [None]
  - Rash [None]
  - Diarrhoea [None]
